FAERS Safety Report 14966192 (Version 1)
Quarter: 2018Q2

REPORT INFORMATION
  Report Type: Spontaneous
  Country: FR (occurrence: FR)
  Receive Date: 20180603
  Receipt Date: 20180603
  Transmission Date: 20180711
  Serious: Yes (Life-Threatening)
  Sender: FDA-Public Use
  Company Number: FR-TEVA-2018-FR-900442

PATIENT
  Age: 72 Year
  Sex: Male
  Weight: 64 kg

DRUGS (5)
  1. PREVISCAN 20 MG, COMPRIM? S?CABLE [Suspect]
     Active Substance: FLUINDIONE
     Indication: CARDIAC VALVE PROSTHESIS USER
     Dosage: 1 DOSAGE FORMS DAILY;
     Route: 048
     Dates: end: 20170701
  2. LEVOTHYROX 75 MICROGRAMMES, COMPRIM? S?CABLE [Suspect]
     Active Substance: LEVOTHYROXINE SODIUM
     Indication: HYPOTHYROIDISM
     Dosage: 1 DOSAGE FORMS DAILY;
     Route: 048
     Dates: end: 201707
  3. PREDNISOLONE. [Suspect]
     Active Substance: PREDNISOLONE
     Indication: IMMUNE THROMBOCYTOPENIC PURPURA
     Dosage: 20 MILLIGRAM DAILY;
     Route: 048
     Dates: start: 201702, end: 201707
  4. PERMIXON 160 MG, G?LULE [Suspect]
     Active Substance: HERBALS\SAW PALMETTO
     Indication: BENIGN PROSTATIC HYPERPLASIA
     Dosage: 2 DOSAGE FORMS DAILY;
     Route: 048
  5. DANATROL 200 MG, G?LULE [Suspect]
     Active Substance: DANAZOL
     Indication: IMMUNE THROMBOCYTOPENIC PURPURA
     Dosage: 3 DOSAGE FORMS DAILY;
     Route: 048
     Dates: start: 20170413

REACTIONS (3)
  - Oesophageal varices haemorrhage [Recovered/Resolved]
  - Non-cirrhotic portal hypertension [Recovering/Resolving]
  - Nodular regenerative hyperplasia [Recovering/Resolving]

NARRATIVE: CASE EVENT DATE: 20170627
